FAERS Safety Report 10912405 (Version 1)
Quarter: 2015Q1

REPORT INFORMATION
  Report Type: Spontaneous
  Country: US (occurrence: None)
  Receive Date: 20150310
  Receipt Date: 20150310
  Transmission Date: 20150721
  Serious: Yes (Hospitalization, Other)
  Sender: FDA-Public Use
  Company Number: US-ZYDUS-006807

PATIENT
  Age: 73 Year
  Sex: Female

DRUGS (3)
  1. PREDNISONE (PREDNISONE) [Suspect]
     Active Substance: PREDNISONE
  2. AZATHIOPRINE (AZATHIOPRINE) [Suspect]
     Active Substance: AZATHIOPRINE
  3. TACROLIMUS (TACROLIMUS) [Concomitant]
     Active Substance: TACROLIMUS

REACTIONS (4)
  - Post procedural complication [None]
  - Probiotic therapy [None]
  - Clostridium difficile colitis [None]
  - Mental status changes [None]
